FAERS Safety Report 24270940 (Version 1)
Quarter: 2024Q3

REPORT INFORMATION
  Report Type: Spontaneous
  Country: FR (occurrence: FR)
  Receive Date: 20240831
  Receipt Date: 20240831
  Transmission Date: 20241017
  Serious: Yes (Other)
  Sender: AUROBINDO
  Company Number: FR-AFSSAPS-LL2024001567

PATIENT
  Age: 2 Month
  Sex: Male
  Weight: 2.23 kg

DRUGS (2)
  1. ESCITALOPRAM [Suspect]
     Active Substance: ESCITALOPRAM OXALATE
     Indication: Epilepsy
     Dosage: 15 MILLIGRAM, ONCE A DAY (15 MG IN THE MORNING)
     Route: 065
     Dates: start: 20171001
  2. LYRICA [Suspect]
     Active Substance: PREGABALIN
     Indication: Epilepsy
     Dosage: 300 MILLIGRAM, ONCE A DAY (150 MG MORNING AND EVENING)
     Route: 065
     Dates: start: 20171001

REACTIONS (3)
  - Foetal growth restriction [Recovering/Resolving]
  - Premature baby [Recovered/Resolved]
  - Maternal exposure during pregnancy [Recovered/Resolved]

NARRATIVE: CASE EVENT DATE: 20240522
